FAERS Safety Report 9366087 (Version 2)
Quarter: 2014Q1

REPORT INFORMATION
  Report Type: Spontaneous
  Country: FR (occurrence: FR)
  Receive Date: 20130625
  Receipt Date: 20140226
  Transmission Date: 20141002
  Serious: Yes (Life-Threatening, Hospitalization)
  Sender: FDA-Public Use
  Company Number: FR-PFIZER INC-2013186811

PATIENT
  Age: 11 Year
  Sex: Male
  Weight: 40 kg

DRUGS (3)
  1. IBUPROFENE [Suspect]
     Indication: HEADACHE
     Dosage: 200 MG, 3X/DAY
     Route: 048
     Dates: start: 20130611
  2. IBUPROFENE [Suspect]
     Indication: ANALGESIC THERAPY
  3. PARACETAMOL [Concomitant]
     Indication: ANALGESIC THERAPY
     Dosage: UNK, 4X/DAY
     Route: 048
     Dates: start: 20130611

REACTIONS (3)
  - Brain abscess [Recovered/Resolved]
  - Sinusitis [Recovered/Resolved]
  - Pleurisy [Unknown]
